FAERS Safety Report 14374163 (Version 1)
Quarter: 2018Q1

REPORT INFORMATION
  Report Type: Report from Study
  Country: AT (occurrence: AT)
  Receive Date: 20180111
  Receipt Date: 20180111
  Transmission Date: 20180509
  Serious: Yes (Death)
  Sender: FDA-Public Use
  Company Number: AT-ROCHE-2052085

PATIENT
  Sex: Male
  Weight: 74 kg

DRUGS (7)
  1. MABTHERA [Suspect]
     Active Substance: RITUXIMAB
     Indication: ANTI-NEUTROPHIL CYTOPLASMIC ANTIBODY POSITIVE VASCULITIS
     Route: 042
     Dates: start: 201409, end: 201708
  2. PANTOLOC [Concomitant]
     Active Substance: PANTOPRAZOLE SODIUM
     Dosage: 1-0-0
     Route: 065
  3. OLEOVIT D3 [Concomitant]
     Active Substance: CHOLECALCIFEROL
     Route: 065
  4. XARELTO [Concomitant]
     Active Substance: RIVAROXABAN
     Dosage: 1-0-0
     Route: 065
  5. CALCIDURAN [Concomitant]
     Route: 065
  6. APREDNISLON [Concomitant]
     Active Substance: PREDNISOLONE
     Dosage: 1-0-0
     Route: 065
  7. PREGABALIN. [Concomitant]
     Active Substance: PREGABALIN
     Dosage: 1-0-1
     Route: 065

REACTIONS (1)
  - Acute myocardial infarction [Fatal]

NARRATIVE: CASE EVENT DATE: 20171201
